FAERS Safety Report 5288939-9 (Version None)
Quarter: 2007Q2

REPORT INFORMATION
  Report Type: 
  Country: None (occurrence: None)
  Receive Date: 20070405
  Receipt Date: 20070328
  Transmission Date: 20071010
  Serious: Yes (Other)
  Sender: FDA-Public Use
  Company Number: PT-PFIZER INC-2006140739

PATIENT
  Sex: Female

DRUGS (3)
  1. ALDACTONE [Suspect]
     Indication: HORMONE LEVEL ABNORMAL
     Route: 048
  2. ALDACTONE [Suspect]
     Indication: HAIR GROWTH ABNORMAL
  3. DROSPIRENONE + ETHINYL ESTRADIOL [Concomitant]
     Route: 048

REACTIONS (4)
  - BLOOD CORTISOL INCREASED [None]
  - GAMMA-GLUTAMYLTRANSFERASE INCREASED [None]
  - THYROID DISORDER [None]
  - THYROIDITIS [None]
